FAERS Safety Report 16520187 (Version 1)
Quarter: 2019Q3

REPORT INFORMATION
  Report Type: Spontaneous
  Country: US (occurrence: US)
  Receive Date: 20190702
  Receipt Date: 20190702
  Transmission Date: 20191004
  Serious: Yes (Hospitalization, Other)
  Sender: FDA-Public Use
  Company Number: US-AMGEN INC.-USASP2019104931

PATIENT
  Age: 57 Year
  Sex: Female

DRUGS (1)
  1. AIMOVIG [Suspect]
     Active Substance: ERENUMAB-AOOE
     Indication: PRODUCT USED FOR UNKNOWN INDICATION
     Dosage: 70 MILLIGRAM, UNK
     Route: 065
     Dates: start: 2019, end: 201906

REACTIONS (6)
  - Tinnitus [Unknown]
  - Syncope [Unknown]
  - Disorientation [Unknown]
  - Fatigue [Not Recovered/Not Resolved]
  - Leukocytosis [Unknown]
  - Memory impairment [Not Recovered/Not Resolved]

NARRATIVE: CASE EVENT DATE: 2019
